FAERS Safety Report 6727829-9 (Version None)
Quarter: 2010Q2

REPORT INFORMATION
  Report Type: 
  Country: None (occurrence: None)
  Receive Date: 20100514
  Receipt Date: 20100514
  Transmission Date: 20101027
  Serious: Yes (Life-Threatening, Other)
  Sender: FDA-Public Use
  Company Number: None

PATIENT
  Age: 71 Year
  Sex: Male
  Weight: 95.2554 kg

DRUGS (1)
  1. AVELOX [Suspect]
     Indication: BRONCHITIS
     Dosage: 1 TABLET DAILY/12DAYS PO
     Route: 048
     Dates: start: 20100511, end: 20100512

REACTIONS (5)
  - ARTHRALGIA [None]
  - INSOMNIA [None]
  - PARAESTHESIA [None]
  - SKIN BURNING SENSATION [None]
  - TENDON PAIN [None]
